FAERS Safety Report 20659481 (Version 4)
Quarter: 2023Q1

REPORT INFORMATION
  Report Type: Report from Study
  Country: US (occurrence: US)
  Receive Date: 20220331
  Receipt Date: 20230314
  Transmission Date: 20230418
  Serious: Yes (Hospitalization)
  Sender: FDA-Public Use
  Company Number: US-PFIZER INC-202200474192

PATIENT
  Age: 2 Year
  Sex: Female
  Weight: 14.7 kg

DRUGS (7)
  1. VINCRISTINE SULFATE [Suspect]
     Active Substance: VINCRISTINE SULFATE
     Indication: Acute lymphocytic leukaemia
     Dosage: 1.5 MG/M2
     Route: 042
     Dates: start: 20211230
  2. VINCRISTINE SULFATE [Suspect]
     Active Substance: VINCRISTINE SULFATE
     Dosage: 0.9 MG, AT SPECIFIED TIMEPOINTS
     Route: 042
     Dates: start: 20220113
  3. CYTARABINE [Suspect]
     Active Substance: CYTARABINE
     Indication: Acute lymphocytic leukaemia
     Dosage: 44 MG/M2, AT SPECIFIED TIMEPOINTS
     Route: 058
     Dates: start: 20211230
  4. RUXOLITINIB [Suspect]
     Active Substance: RUXOLITINIB
     Indication: Acute lymphocytic leukaemia
     Dosage: 30 MG, 2X/DAY, AT SPECIFIED TIMEPOINTS, TABLET
     Route: 048
     Dates: start: 20211230
  5. PEGASPARGASE [Suspect]
     Active Substance: PEGASPARGASE
     Indication: Acute lymphocytic leukaemia
     Dosage: 2500 IU/M2, AT SPECIFIED TIMEPOINTS
     Route: 042
     Dates: start: 20220113
  6. PEGASPARGASE [Suspect]
     Active Substance: PEGASPARGASE
     Dosage: 1500 UNITS AT SPECIFIED TIMEPOINTS
     Route: 042
     Dates: start: 20220113
  7. MERCAPTOPURINE [Suspect]
     Active Substance: MERCAPTOPURINE
     Indication: Acute lymphocytic leukaemia
     Dosage: 36 MG, TABLET AT SPECIFIED TIMEPOINTS
     Route: 048
     Dates: start: 20211230

REACTIONS (3)
  - Febrile neutropenia [Recovered/Resolved]
  - Cellulitis [Recovered/Resolved]
  - Enterocolitis infectious [Recovered/Resolved with Sequelae]

NARRATIVE: CASE EVENT DATE: 20220302
